FAERS Safety Report 4317273-6 (Version None)
Quarter: 2004Q1

REPORT INFORMATION
  Report Type: 
  Country: None (occurrence: None)
  Receive Date: 20040312
  Receipt Date: 20040303
  Transmission Date: 20041129
  Serious: Yes (Other)
  Sender: FDA-Public Use
  Company Number: 2004-03-0105

PATIENT
  Sex: Male
  Weight: 69 kg

DRUGS (2)
  1. REBETOL [Suspect]
     Indication: HEPATITIS ACUTE
     Dosage: 1000 MG QD ORAL
     Route: 048
     Dates: start: 20040110, end: 20040111
  2. PEGASYS [Suspect]
     Indication: HEPATITIS ACUTE
     Dosage: 180 MCG SUBCUTANEOUS
     Route: 058
     Dates: start: 20040110, end: 20040111

REACTIONS (4)
  - DERMATITIS ALLERGIC [None]
  - DRUG HYPERSENSITIVITY [None]
  - SWELLING FACE [None]
  - THROAT TIGHTNESS [None]
